FAERS Safety Report 7656956-7 (Version None)
Quarter: 2011Q3

REPORT INFORMATION
  Report Type: 
  Country: None (occurrence: None)
  Receive Date: 20110802
  Receipt Date: 20110720
  Transmission Date: 20111222
  Serious: Yes (Other)
  Sender: FDA-Public Use
  Company Number: 2011P1007890

PATIENT
  Age: 4 Year
  Sex: Male
  Weight: 15 kg

DRUGS (1)
  1. ONDANSETRON [Suspect]
     Indication: VOMITING
     Dosage: 2 MG, X1, IV
     Route: 042

REACTIONS (9)
  - REFLEXES ABNORMAL [None]
  - DYSTONIA [None]
  - HYPOGLYCAEMIA [None]
  - BRUXISM [None]
  - CONVULSION [None]
  - SOMNOLENCE [None]
  - HYPERTONIA [None]
  - GRAND MAL CONVULSION [None]
  - EXTENSOR PLANTAR RESPONSE [None]
